FAERS Safety Report 8541117-X (Version None)
Quarter: 2012Q3

REPORT INFORMATION
  Report Type: 
  Country: None (occurrence: None)
  Receive Date: 20120726
  Receipt Date: 20110919
  Transmission Date: 20120928
  Serious: No
  Sender: FDA-Public Use
  Company Number: US-ASTRAZENECA-2011SE50642

PATIENT
  Age: 53 Year
  Sex: Female
  Weight: 122.5 kg

DRUGS (4)
  1. SEROQUEL [Suspect]
     Route: 048
     Dates: start: 20090101
  2. NEXIUM [Concomitant]
  3. TRAMADOL HYDROCHLORIDE [Concomitant]
     Indication: PAIN
  4. SEROQUEL [Suspect]
     Indication: SLEEP DISORDER
     Route: 048

REACTIONS (4)
  - ARTHRALGIA [None]
  - DYSPEPSIA [None]
  - WEIGHT INCREASED [None]
  - OFF LABEL USE [None]
